FAERS Safety Report 26006821 (Version 2)
Quarter: 2025Q4

REPORT INFORMATION
  Report Type: Spontaneous
  Country: CN (occurrence: CN)
  Receive Date: 20251106
  Receipt Date: 20251112
  Transmission Date: 20260118
  Serious: Yes (Life-Threatening, Other)
  Sender: PFIZER
  Company Number: CN-PFIZER INC-PV202500128885

PATIENT
  Age: 83 Year
  Sex: Male

DRUGS (2)
  1. FLUCONAZOLE [Suspect]
     Active Substance: FLUCONAZOLE
     Indication: Antifungal treatment
     Dosage: 600 MG (INITIAL DOSE)
  2. FLUCONAZOLE [Suspect]
     Active Substance: FLUCONAZOLE
     Indication: Candida infection
     Dosage: 400 MG (MAINTENANCE DOSE)

REACTIONS (6)
  - Cardiotoxicity [Unknown]
  - Electrolyte imbalance [Recovering/Resolving]
  - Atrioventricular block first degree [Unknown]
  - Electrocardiogram QT prolonged [Unknown]
  - Hyperkalaemia [Recovered/Resolved]
  - Off label use [Unknown]
